FAERS Safety Report 23465884 (Version 5)
Quarter: 2024Q3

REPORT INFORMATION
  Report Type: Report from Study
  Country: UA (occurrence: UA)
  Receive Date: 20240201
  Receipt Date: 20240814
  Transmission Date: 20241016
  Serious: Yes (Death, Hospitalization)
  Sender: BRAEBURN PHARMACEUTICALS
  Company Number: UA-BRAEBURN INC-2023BBN00200

PATIENT
  Age: 43 Year
  Sex: Male

DRUGS (1)
  1. BUPRENORPHINE [Suspect]
     Active Substance: BUPRENORPHINE
     Indication: Drug use disorder
     Dosage: 96 MILLIGRAM
     Route: 058

REACTIONS (6)
  - Completed suicide [Fatal]
  - Intentional self-injury [Unknown]
  - Hallucination, auditory [Unknown]
  - Language disorder [Unknown]
  - Tension [Unknown]
  - Irritability [Unknown]

NARRATIVE: CASE EVENT DATE: 20230509
